FAERS Safety Report 4530226-8 (Version None)
Quarter: 2004Q4

REPORT INFORMATION
  Report Type: 
  Country: None (occurrence: None)
  Receive Date: 20041215
  Receipt Date: 20041202
  Transmission Date: 20050328
  Serious: Yes (Other)
  Sender: FDA-Public Use
  Company Number: 2004104104

PATIENT
  Sex: Female
  Weight: 98.4306 kg

DRUGS (9)
  1. LIPITOR [Suspect]
     Indication: BLOOD CHOLESTEROL INCREASED
     Dosage: (EVERY DAY), ORAL
     Route: 048
     Dates: end: 20040101
  2. ATENOLOL [Concomitant]
  3. CALCIUM (CALCIUM) [Concomitant]
  4. ASPIRIN [Concomitant]
  5. CALCIUM 9CALCIUM) [Concomitant]
  6. ACETYLSALICYLIC ACID SRT [Concomitant]
  7. MULTIVITAMIN [Concomitant]
  8. ACIPHEX [Concomitant]
  9. FISH OIL (FISH OIL) [Concomitant]

REACTIONS (13)
  - ACROCHORDON [None]
  - BLOOD CHOLESTEROL INCREASED [None]
  - CARDIAC VALVE DISEASE [None]
  - CARPAL TUNNEL SYNDROME [None]
  - CONGENITAL ATRIAL SEPTAL DEFECT [None]
  - HYPOAESTHESIA [None]
  - JOINT RANGE OF MOTION DECREASED [None]
  - LOW DENSITY LIPOPROTEIN INCREASED [None]
  - PAIN [None]
  - PAIN IN EXTREMITY [None]
  - ROSEOLA [None]
  - URINARY INCONTINENCE [None]
  - WEIGHT LOSS DIET [None]
